FAERS Safety Report 8538548-0 (Version None)
Quarter: 2012Q3

REPORT INFORMATION
  Report Type: 
  Country: None (occurrence: None)
  Receive Date: 20120718
  Receipt Date: 20120718
  Transmission Date: 20120928
  Serious: Yes (Life-Threatening)
  Sender: FDA-Public Use
  Company Number: None

PATIENT
  Age: 76 Year
  Sex: Female
  Weight: 84.8226 kg

DRUGS (1)
  1. MAGNEVIST [Suspect]
     Indication: NUCLEAR MAGNETIC RESONANCE IMAGING

REACTIONS (6)
  - FEELING ABNORMAL [None]
  - PULMONARY OEDEMA [None]
  - OEDEMA [None]
  - HYPERHIDROSIS [None]
  - RESPIRATORY ARREST [None]
  - CARDIAC DISORDER [None]
